FAERS Safety Report 5826857-5 (Version None)
Quarter: 2008Q3

REPORT INFORMATION
  Report Type: 
  Country: None (occurrence: None)
  Receive Date: 20080730
  Receipt Date: 20080717
  Transmission Date: 20090109
  Serious: Yes (Other)
  Sender: FDA-Public Use
  Company Number: US-BAYER-200827970NA

PATIENT
  Age: 25 Year
  Sex: Female
  Weight: 103 kg

DRUGS (2)
  1. MIRENA [Suspect]
     Indication: CONTRACEPTION
     Route: 015
     Dates: start: 20080612, end: 20080710
  2. IBUPROFEN [Concomitant]
     Indication: AFTERBIRTH PAIN
     Route: 048
     Dates: start: 20080501

REACTIONS (8)
  - ABDOMINAL PAIN LOWER [None]
  - COMPLICATION OF DEVICE INSERTION [None]
  - IUCD COMPLICATION [None]
  - MOOD ALTERED [None]
  - PROCEDURAL PAIN [None]
  - STRESS [None]
  - SUPPRESSED LACTATION [None]
  - UTERINE RUPTURE [None]
